FAERS Safety Report 24011487 (Version 1)
Quarter: 2024Q2

REPORT INFORMATION
  Report Type: Spontaneous
  Country: US (occurrence: US)
  Receive Date: 20240625
  Receipt Date: 20240625
  Transmission Date: 20240716
  Serious: Yes (Hospitalization)
  Sender: FDA-Public Use
  Company Number: US-RIGEL-20240600004

PATIENT
  Age: 70 Year
  Sex: Female
  Weight: 77.927 kg

DRUGS (1)
  1. TAVALISSE [Suspect]
     Active Substance: FOSTAMATINIB
     Indication: Immune thrombocytopenia
     Dosage: 50 MG ONCE EVERY OTHER DAY
     Route: 048

REACTIONS (5)
  - Chest discomfort [Unknown]
  - Pain in extremity [Unknown]
  - Chest pain [Unknown]
  - Product dose omission issue [Unknown]
  - Product prescribing issue [Unknown]

NARRATIVE: CASE EVENT DATE: 20240501
